FAERS Safety Report 4982430-2 (Version None)
Quarter: 2006Q2

REPORT INFORMATION
  Report Type: 
  Country: None (occurrence: None)
  Receive Date: 20060419
  Receipt Date: 20060406
  Transmission Date: 20061013
  Serious: Yes (Other)
  Sender: FDA-Public Use
  Company Number: 2006050798

PATIENT
  Age: 52 Year
  Sex: Male

DRUGS (3)
  1. BEXTRA [Suspect]
     Indication: RENAL COLIC
     Dosage: 20 MG (20 MG, 1 IN 1 D), ORAL
     Route: 048
     Dates: start: 20031111, end: 20031119
  2. PERCOCET [Suspect]
     Indication: RENAL COLIC
     Dosage: ORAL
     Route: 048
     Dates: start: 20031111
  3. TORADOL [Concomitant]

REACTIONS (12)
  - ACUTE GENERALISED EXANTHEMATOUS PUSTULOSIS [None]
  - BILIRUBIN URINE [None]
  - BLOOD URINE PRESENT [None]
  - DERMATITIS [None]
  - DRUG ERUPTION [None]
  - GLUCOSE URINE PRESENT [None]
  - NITRITE URINE PRESENT [None]
  - PYREXIA [None]
  - RASH ERYTHEMATOUS [None]
  - RASH MACULAR [None]
  - RASH PRURITIC [None]
  - URINE KETONE BODY PRESENT [None]
